FAERS Safety Report 15627276 (Version 2)
Quarter: 2019Q2

REPORT INFORMATION
  Report Type: Report from Study
  Country: CA (occurrence: CA)
  Receive Date: 20181116
  Receipt Date: 20190401
  Transmission Date: 20190711
  Serious: Yes (Hospitalization)
  Sender: FDA-Public Use
  Company Number: CA-EISAI MEDICAL RESEARCH-EC-2018-035928

PATIENT
  Sex: Female

DRUGS (22)
  1. CITALOPRAM [Concomitant]
     Active Substance: CITALOPRAM HYDROBROMIDE
  2. SYNTHROID [Concomitant]
     Active Substance: LEVOTHYROXINE SODIUM
  3. PANTOPRAZOLE [Concomitant]
     Active Substance: PANTOPRAZOLE
  4. VITAMIN D2 [Concomitant]
     Active Substance: ERGOCALCIFEROL
  5. LENVIMA [Suspect]
     Active Substance: LENVATINIB
     Route: 048
     Dates: start: 20180507, end: 201806
  6. NAPROXEN. [Suspect]
     Active Substance: NAPROXEN
     Indication: PRODUCT USED FOR UNKNOWN INDICATION
     Dosage: UNKNOWN
     Dates: end: 2018
  7. VITAMIN B [Concomitant]
     Active Substance: VITAMIN B
  8. VENTOLIN [Concomitant]
     Active Substance: ALBUTEROL SULFATE
  9. LENVIMA [Suspect]
     Active Substance: LENVATINIB
     Route: 048
     Dates: start: 20180309, end: 201805
  10. ACEBUTOLOL [Concomitant]
     Active Substance: ACEBUTOLOL
  11. LENVIMA [Suspect]
     Active Substance: LENVATINIB
     Indication: THYROID CANCER
     Route: 048
     Dates: start: 20180202, end: 20180302
  12. TYLENOL ARTHRITIS PAIN [Suspect]
     Active Substance: ACETAMINOPHEN
     Dosage: UNKNOWN
     Dates: end: 2018
  13. GABAPENTIN. [Concomitant]
     Active Substance: GABAPENTIN
  14. MELATONIN [Concomitant]
     Active Substance: MELATONIN
  15. LENVIMA [Suspect]
     Active Substance: LENVATINIB
     Route: 048
     Dates: start: 20180611, end: 201807
  16. LENVIMA [Suspect]
     Active Substance: LENVATINIB
     Route: 048
     Dates: start: 201807, end: 201809
  17. NAPROXEN. [Suspect]
     Active Substance: NAPROXEN
     Dosage: UNKNOWN
     Dates: end: 2018
  18. TYLENOL ARTHRITIS PAIN [Suspect]
     Active Substance: ACETAMINOPHEN
     Indication: PRODUCT USED FOR UNKNOWN INDICATION
     Dosage: UNKNOWN
     Dates: end: 2018
  19. ASA [Concomitant]
     Active Substance: ASPIRIN
  20. ATIVAN PRN [Concomitant]
  21. NORVASC [Concomitant]
     Active Substance: AMLODIPINE BESYLATE
  22. FLOVENT [Concomitant]
     Active Substance: FLUTICASONE PROPIONATE

REACTIONS (10)
  - Blood pressure increased [Unknown]
  - Anxiety [Unknown]
  - Diarrhoea [Unknown]
  - Intestinal perforation [Unknown]
  - Arthralgia [Not Recovered/Not Resolved]
  - Constipation [Recovered/Resolved]
  - Muscle spasms [Not Recovered/Not Resolved]
  - Protein urine present [Unknown]
  - Oral pain [Unknown]
  - Lung infection [Unknown]

NARRATIVE: CASE EVENT DATE: 2018
